FAERS Safety Report 9631176 (Version 1)
Quarter: 2013Q4

REPORT INFORMATION
  Report Type: Spontaneous
  Country: FR (occurrence: None)
  Receive Date: 20131016
  Receipt Date: 20131016
  Transmission Date: 20140711
  Serious: Yes (Hospitalization)
  Sender: FDA-Public Use
  Company Number: SYM-2013-11459

PATIENT
  Age: 86 Year
  Sex: Female

DRUGS (9)
  1. MONO-TILDIEM [Suspect]
     Indication: PRODUCT USED FOR UNKNOWN INDICATION
     Route: 048
     Dates: end: 20130625
  2. TANGANIL [Concomitant]
  3. KARDEGIC [Concomitant]
  4. APPROVEL [Concomitant]
  5. DAFLON [Concomitant]
  6. STILNOX [Concomitant]
  7. INEXIUM [Concomitant]
  8. VOLTARENE [Concomitant]
  9. LOXEN [Concomitant]

REACTIONS (7)
  - Conduction disorder [None]
  - Bradycardia [None]
  - Arthralgia [None]
  - Malaise [None]
  - Electrocardiogram T wave inversion [None]
  - Atrioventricular block first degree [None]
  - Agitation [None]
